FAERS Safety Report 5576394-0 (Version None)
Quarter: 2007Q4

REPORT INFORMATION
  Report Type: 
  Country: None (occurrence: None)
  Receive Date: 20071228
  Receipt Date: 20071218
  Transmission Date: 20080405
  Serious: Yes (Hospitalization)
  Sender: FDA-Public Use
  Company Number: JP-ASTRAZENECA-2007SE06778

PATIENT

DRUGS (2)
  1. BLOPRESS [Suspect]
     Route: 048
     Dates: start: 20071129
  2. ADALAT [Concomitant]
     Route: 048

REACTIONS (2)
  - CEREBRAL INFARCTION [None]
  - OVERDOSE [None]
